FAERS Safety Report 6295438-4 (Version None)
Quarter: 2009Q3

REPORT INFORMATION
  Report Type: 
  Country: None (occurrence: None)
  Receive Date: 20090730
  Receipt Date: 20090720
  Transmission Date: 20100115
  Serious: Yes (Life-Threatening, Hospitalization)
  Sender: FDA-Public Use
  Company Number: GXKR2009GB08239

PATIENT
  Age: 83 Year
  Sex: Female

DRUGS (10)
  1. CO-CODAMOL (NGX) (ACETAMINOPHEN (PARACETAMOL), CODEINE PHOSPHATE) UNKN [Suspect]
     Indication: BACK PAIN
     Dosage: ORAL
     Route: 048
  2. CHONDROITIN SULFATE (CHONDROITIN SULFATE) [Suspect]
     Indication: OSTEOARTHRITIS
     Dosage: ORAL
     Route: 048
  3. ADCAL-D3 (CALCIUM CARBONATE, COLECALCIFEROL) [Concomitant]
  4. ALENDRONIC ACID (ALENDRONIC ACID) [Concomitant]
  5. IBUPROFEN [Concomitant]
  6. MONTELUKAST SODIUM [Concomitant]
  7. OMEPRAZOLE [Concomitant]
  8. SALBUTAMOL (SALBUTAMOL) [Concomitant]
  9. ADVAIR HFA [Concomitant]
  10. WARFARIN SODIUM [Concomitant]

REACTIONS (3)
  - CONTUSION [None]
  - HAEMORRHAGE SUBCUTANEOUS [None]
  - INTERNATIONAL NORMALISED RATIO INCREASED [None]
